FAERS Safety Report 8854509 (Version 2)
Quarter: 2012Q4

REPORT INFORMATION
  Report Type: Report from Study
  Country: DE (occurrence: DE)
  Receive Date: 20121023
  Receipt Date: 20121031
  Transmission Date: 20130627
  Serious: Yes (Hospitalization)
  Sender: FDA-Public Use
  Company Number: DE-CELGENEUS-062-21880-12102491

PATIENT
  Age: 73 Year
  Sex: Female
  Weight: 69 kg

DRUGS (6)
  1. REVLIMID [Suspect]
     Indication: MULTIPLE MYELOMA
     Dosage: 15 Milligram
     Route: 048
     Dates: start: 20111129, end: 20121015
  2. DEXAMETHASONE [Suspect]
     Indication: MULTIPLE MYELOMA
     Dosage: 40 Milligram
     Route: 065
     Dates: start: 20111129
  3. G-CSF [Suspect]
     Indication: MULTIPLE MYELOMA
     Route: 058
     Dates: start: 20120306, end: 20120308
  4. CYCLOPHOSPHAMIDE [Suspect]
     Indication: MULTIPLE MYELOMA
     Route: 065
     Dates: start: 20120306, end: 20120308
  5. ETOPOSIDE [Suspect]
     Indication: MULTIPLE MYELOMA
     Route: 065
     Dates: start: 20120306, end: 20120308
  6. COTRIM [Concomitant]
     Indication: PROPHYLAXIS
     Dosage: 560 Milligram
     Route: 048
     Dates: start: 201111

REACTIONS (1)
  - Transient ischaemic attack [Unknown]
